FAERS Safety Report 9845190 (Version 1)
Quarter: 2014Q1

REPORT INFORMATION
  Report Type: Spontaneous
  Country: US (occurrence: None)
  Receive Date: 20140122
  Receipt Date: 20140122
  Transmission Date: 20141002
  Serious: Yes (Other)
  Sender: FDA-Public Use
  Company Number: 2122525

PATIENT
  Age: 69 Year
  Sex: Male
  Weight: 72.57 kg

DRUGS (2)
  1. DEMEROL [Suspect]
     Indication: SEDATION
     Dosage: (TOTAL)
     Route: 042
     Dates: start: 20131230, end: 20131230
  2. (VERSED) [Concomitant]

REACTIONS (2)
  - Injection site oedema [None]
  - Injection site erythema [None]
